FAERS Safety Report 9028470 (Version 1)
Quarter: 2013Q1

REPORT INFORMATION
  Report Type: Spontaneous
  Country: IE (occurrence: IE)
  Receive Date: 20130124
  Receipt Date: 20130124
  Transmission Date: 20140127
  Serious: Yes (Other)
  Sender: FDA-Public Use
  Company Number: IE-SANOFI-AVENTIS-2013SA002746

PATIENT
  Age: 53 Year
  Sex: Male

DRUGS (4)
  1. SULFASALAZINE [Suspect]
     Indication: ARTHRITIS
     Route: 065
     Dates: start: 2008, end: 2008
  2. LEFLUNOMIDE [Suspect]
     Indication: ARTHRITIS
     Route: 065
  3. CORTICOSTEROIDS [Concomitant]
     Indication: ARTHRITIS
     Route: 048
  4. CORTICOSTEROIDS [Concomitant]
     Indication: ARTHRITIS
     Route: 048

REACTIONS (7)
  - Pulmonary eosinophilia [Recovered/Resolved]
  - Dyspnoea exertional [Recovered/Resolved]
  - Eosinophilia [Recovered/Resolved]
  - Tachypnoea [Recovered/Resolved]
  - PO2 decreased [Recovered/Resolved]
  - Oxygen saturation decreased [Recovered/Resolved]
  - Hypertension [Unknown]
